FAERS Safety Report 20303210 (Version 1)
Quarter: 2022Q1

REPORT INFORMATION
  Report Type: Report from Study
  Country: ES (occurrence: ES)
  Receive Date: 20220106
  Receipt Date: 20220106
  Transmission Date: 20220423
  Serious: Yes (Other)
  Sender: FDA-Public Use
  Company Number: None

PATIENT
  Age: 75 Year
  Sex: Male

DRUGS (2)
  1. CARVEDILOL [Interacting]
     Active Substance: CARVEDILOL
     Dosage: CARVEDILOL (2431A)
     Route: 065
     Dates: start: 2019, end: 20210126
  2. DIGOXIN [Interacting]
     Active Substance: DIGOXIN
     Dosage: DIGOXIN (770A)
     Route: 065
     Dates: start: 2019, end: 20210126

REACTIONS (4)
  - Bradycardia [Recovered/Resolved]
  - Abdominal pain [Recovered/Resolved]
  - Diarrhoea [Recovered/Resolved]
  - Drug interaction [Unknown]

NARRATIVE: CASE EVENT DATE: 20210101
